FAERS Safety Report 8158362-8 (Version None)
Quarter: 2012Q1

REPORT INFORMATION
  Report Type: 
  Country: None (occurrence: None)
  Receive Date: 20120223
  Receipt Date: 20120220
  Transmission Date: 20120608
  Serious: Yes (Death)
  Sender: FDA-Public Use
  Company Number: IT-BRACCO-001472

PATIENT
  Sex: Female
  Weight: 80 kg

DRUGS (2)
  1. MULTIHANCE [Suspect]
     Indication: GALLBLADDER CANCER
     Dosage: 2 ML/SEC
     Route: 042
     Dates: start: 20111118, end: 20111118
  2. MULTIHANCE [Suspect]
     Indication: NUCLEAR MAGNETIC RESONANCE IMAGING ABDOMINAL
     Dosage: 2 ML/SEC
     Route: 042
     Dates: start: 20111118, end: 20111118

REACTIONS (8)
  - CARDIAC ARREST [None]
  - CONVULSION [None]
  - CYANOSIS [None]
  - ABDOMINAL PAIN UPPER [None]
  - LOSS OF CONSCIOUSNESS [None]
  - NAUSEA [None]
  - PULSE PRESSURE DECREASED [None]
  - FOAMING AT MOUTH [None]
